FAERS Safety Report 10168226 (Version 2)
Quarter: 2014Q2

REPORT INFORMATION
  Report Type: Spontaneous
  Country: US (occurrence: US)
  Receive Date: 20140512
  Receipt Date: 20140513
  Transmission Date: 20141212
  Serious: No
  Sender: FDA-Public Use
  Company Number: US-ASTRAZENECA-2013SE61370

PATIENT
  Age: 66 Year
  Sex: Female
  Weight: 66.7 kg

DRUGS (14)
  1. FASLODEX [Suspect]
     Indication: METASTASES TO LYMPH NODES
     Route: 030
     Dates: start: 201202
  2. FASLODEX [Suspect]
     Indication: BREAST CANCER
     Route: 030
     Dates: start: 201202
  3. AMOXICILLIN [Concomitant]
     Indication: SKIN REACTION
  4. DAYPRO [Concomitant]
     Indication: ARTHROPATHY
  5. SONATA [Concomitant]
     Indication: SLEEP DISORDER
  6. VICODAN [Concomitant]
     Indication: PAIN
  7. DIPHENOXYLATE-ATROPINE [Concomitant]
     Indication: DIARRHOEA
  8. LORAZAPAM [Concomitant]
     Indication: NAUSEA
  9. LORAZAPAM [Concomitant]
     Indication: SLEEP DISORDER
  10. PERCOCET [Concomitant]
     Dosage: PRN
  11. PROCHLORPERAZINE MALEATE [Concomitant]
     Indication: NAUSEA
     Dosage: PRN
  12. LIPITOR [Concomitant]
     Indication: BLOOD CHOLESTEROL INCREASED
  13. VIT D [Concomitant]
  14. ABRAXANE [Concomitant]

REACTIONS (15)
  - Hypoaesthesia [Unknown]
  - Pain in extremity [Unknown]
  - Skin haemorrhage [Unknown]
  - Blister [Unknown]
  - Adverse event [Unknown]
  - Blood cholesterol increased [Unknown]
  - Vitamin D decreased [Unknown]
  - Hypoaesthesia [Unknown]
  - Arthralgia [Unknown]
  - Pain [Unknown]
  - Paraesthesia [Unknown]
  - Skin irritation [Unknown]
  - Diarrhoea [Unknown]
  - Nausea [Unknown]
  - Skin reaction [Unknown]
